FAERS Safety Report 9290607 (Version 1)
Quarter: 2013Q2

REPORT INFORMATION
  Report Type: Spontaneous
  Country: US (occurrence: US)
  Receive Date: 20130515
  Receipt Date: 20130515
  Transmission Date: 20140414
  Serious: Yes (Other)
  Sender: FDA-Public Use
  Company Number: US-SANOFI-AVENTIS-2013SA048643

PATIENT
  Age: 82 Year
  Sex: Female

DRUGS (2)
  1. ALLEGRA [Suspect]
     Indication: NASAL CONGESTION
     Route: 048
     Dates: start: 20130505, end: 20130506
  2. ALLEGRA-D [Suspect]
     Indication: NASAL DECONGESTION THERAPY
     Dates: start: 2013

REACTIONS (7)
  - Pulmonary congestion [Not Recovered/Not Resolved]
  - Carotid artery disease [Unknown]
  - Deafness [Unknown]
  - Aphagia [Unknown]
  - Dyspnoea [Unknown]
  - Dizziness [Unknown]
  - Panic attack [Unknown]
